FAERS Safety Report 21546726 (Version 1)
Quarter: 2022Q4

REPORT INFORMATION
  Report Type: Spontaneous
  Country: NL (occurrence: NL)
  Receive Date: 20221103
  Receipt Date: 20221103
  Transmission Date: 20230112
  Serious: Yes (Hospitalization)
  Sender: FDA-Public Use
  Company Number: None

PATIENT
  Sex: Male

DRUGS (1)
  1. METOPROLOL [Suspect]
     Active Substance: METOPROLOL
     Indication: Arrhythmia
     Dosage: 50 MILLIGRAM DAILY; 2X/DAY 1 PIECE, METOPROLOL TABLET MGA 25MG (SUCCINATE) / BRAND NAME NOT SPECIFIE
     Dates: start: 20210501, end: 20211027

REACTIONS (2)
  - Hypersomnia [Recovered/Resolved]
  - Exposure via breast milk [Unknown]
